FAERS Safety Report 5298431-3 (Version None)
Quarter: 2007Q2

REPORT INFORMATION
  Report Type: 
  Country: None (occurrence: None)
  Receive Date: 20070416
  Receipt Date: 20070328
  Transmission Date: 20071010
  Serious: Yes (Other)
  Sender: FDA-Public Use
  Company Number: JP-PFIZER INC-2007029319

PATIENT
  Age: 42 Year
  Sex: Female

DRUGS (2)
  1. ZITHROMAC [Suspect]
     Route: 048
  2. DRUG, UNSPECIFIED [Concomitant]

REACTIONS (2)
  - HEART RATE INCREASED [None]
  - PALPITATIONS [None]
